FAERS Safety Report 26023767 (Version 1)
Quarter: 2025Q4

REPORT INFORMATION
  Report Type: Spontaneous
  Country: US (occurrence: US)
  Receive Date: 20251111
  Receipt Date: 20251111
  Transmission Date: 20260117
  Serious: No
  Sender: ABBVIE
  Company Number: US-ABBVIE-6533985

PATIENT
  Sex: Male

DRUGS (7)
  1. BOTOX [Suspect]
     Active Substance: ONABOTULINUMTOXINA
     Indication: Headache
     Dosage: TIME INTERVAL: AS NECESSARY: 5 UNITS?TOTAL: 190 UNITS?DOSAGE FORM: INJECTION, POWDER, LYOP
     Route: 065
  2. BOTOX [Suspect]
     Active Substance: ONABOTULINUMTOXINA
     Indication: Headache
     Dosage: TIME INTERVAL: AS NECESSARY: 5 UNITS EACH SITE?TOTAL: 190 UNITS?DOSAGE FORM: INJECTION, POWDER, LYOP
     Route: 065
  3. BOTOX [Suspect]
     Active Substance: ONABOTULINUMTOXINA
     Indication: Headache
     Dosage: TIME INTERVAL: AS NECESSARY: 25 UNITS EACH SIDE?TOTAL: 190 UNITS?DOSAGE FORM: INJECTION, POWDER, ...
     Route: 065
  4. BOTOX [Suspect]
     Active Substance: ONABOTULINUMTOXINA
     Indication: Headache
     Dosage: TIME INTERVAL: AS NECESSARY: 20 UNITS EACH SIDE?TOTAL: 190 UNITS?DOSAGE FORM: INJECTION, POWDER, ...
     Route: 065
  5. BOTOX [Suspect]
     Active Substance: ONABOTULINUMTOXINA
     Indication: Headache
     Dosage: TIME INTERVAL: AS NECESSARY: 15 UNITS EACH SIDE?TOTAL: 190 UNITS?DOSAGE FORM: INJECTION, POWDER, ...
     Route: 065
  6. BOTOX [Suspect]
     Active Substance: ONABOTULINUMTOXINA
     Indication: Headache
     Dosage: TIME INTERVAL: AS NECESSARY: 15 UNITS EACH SIDE?TOTAL: 190 UNITS?DOSAGE FORM: INJECTION, POWDER, ...
     Route: 065
  7. BOTOX [Suspect]
     Active Substance: ONABOTULINUMTOXINA
     Indication: Headache
     Dosage: TIME INTERVAL: AS NECESSARY: TOTAL: 190 UNITS EACH SIDE?DOSAGE FORM: INJECTION, POWDER, LYOP
     Route: 065

REACTIONS (8)
  - Facial pain [Not Recovered/Not Resolved]
  - Swelling of eyelid [Unknown]
  - Injection site pain [Unknown]
  - Muscle atrophy [Unknown]
  - Product quality issue [Unknown]
  - Muscle contractions involuntary [Unknown]
  - Myalgia [Unknown]
  - Headache [Not Recovered/Not Resolved]
